FAERS Safety Report 4946519-6 (Version None)
Quarter: 2006Q1

REPORT INFORMATION
  Report Type: 
  Country: None (occurrence: None)
  Receive Date: 20060317
  Receipt Date: 20060210
  Transmission Date: 20060701
  Serious: Yes (Hospitalization)
  Sender: FDA-Public Use
  Company Number: PHHO2006JP02716

PATIENT
  Age: 69 Year
  Sex: Female
  Weight: 54 kg

DRUGS (6)
  1. MOBIC [Concomitant]
     Indication: OSTEOARTHRITIS
  2. CONIEL [Concomitant]
     Indication: HYPERTENSION
  3. MYSLEE [Concomitant]
     Indication: INSOMNIA
  4. MUCOSTA [Concomitant]
     Indication: GASTRITIS
     Dosage: UNK, UNK
     Dates: start: 20021008
  5. DIOVAN [Suspect]
     Indication: HYPERTENSION
     Dosage: 40 MG, QD
     Route: 048
     Dates: start: 20021220, end: 20040404
  6. DIOVAN [Suspect]
     Dosage: 80 MG, QD
     Route: 048
     Dates: start: 20040405, end: 20050204

REACTIONS (8)
  - ANGINA PECTORIS [None]
  - BLOOD PRESSURE DECREASED [None]
  - CHEST PAIN [None]
  - CORONARY ARTERY OCCLUSION [None]
  - CORONARY ARTERY STENOSIS [None]
  - ELECTROCARDIOGRAM ST SEGMENT DEPRESSION [None]
  - ELECTROCARDIOGRAM T WAVE INVERSION [None]
  - TACHYCARDIA [None]
